FAERS Safety Report 20512909 (Version 2)
Quarter: 2022Q1

REPORT INFORMATION
  Report Type: Report from Study
  Country: MX (occurrence: MX)
  Receive Date: 20220224
  Receipt Date: 20220303
  Transmission Date: 20220423
  Serious: Yes (Other)
  Sender: FDA-Public Use
  Company Number: MX-NOVARTISPH-NVSC2022MX042014

PATIENT
  Sex: Male
  Weight: 100 kg

DRUGS (1)
  1. EXFORGE [Suspect]
     Active Substance: AMLODIPINE BESYLATE\VALSARTAN
     Indication: Hypertension
     Dosage: 1 DOSAGE FORM (10/320 MG), QD
     Route: 048

REACTIONS (2)
  - Diabetes mellitus [Unknown]
  - Cardiac disorder [Recovering/Resolving]
